FAERS Safety Report 15024779 (Version 1)
Quarter: 2018Q2

REPORT INFORMATION
  Report Type: Spontaneous
  Country: IT (occurrence: IT)
  Receive Date: 20180618
  Receipt Date: 20180618
  Transmission Date: 20180711
  Serious: Yes (Other)
  Sender: FDA-Public Use
  Company Number: IT-FRESENIUS KABI-FK201806945

PATIENT
  Age: 2 Year
  Sex: Female

DRUGS (2)
  1. IBUPROFEN. [Suspect]
     Active Substance: IBUPROFEN
     Indication: PYREXIA
     Route: 065
  2. PARACETAMOL (MANUFACTURER UNKNOWN) [Suspect]
     Active Substance: ACETAMINOPHEN
     Indication: PYREXIA
     Route: 065

REACTIONS (4)
  - Renal tubular acidosis [Unknown]
  - Dehydration [Unknown]
  - Oedema [Unknown]
  - Blood bicarbonate decreased [Unknown]
